APPROVED DRUG PRODUCT: VERSED
Active Ingredient: MIDAZOLAM HYDROCHLORIDE
Strength: EQ 1MG BASE/ML **Federal Register determination that product was not discontinued or withdrawn for safety or effectiveness reasons**
Dosage Form/Route: INJECTABLE;INJECTION
Application: N018654 | Product #002
Applicant: HLR TECHNOLOGY
Approved: May 26, 1987 | RLD: Yes | RS: No | Type: DISCN